FAERS Safety Report 10755641 (Version 4)
Quarter: 2015Q2

REPORT INFORMATION
  Report Type: Spontaneous
  Country: ES (occurrence: ES)
  Receive Date: 20150202
  Receipt Date: 20150429
  Transmission Date: 20150821
  Serious: Yes (Hospitalization, Other)
  Sender: FDA-Public Use
  Company Number: ES-BRISTOL-MYERS SQUIBB COMPANY-BMS-2015-003606

PATIENT

DRUGS (1)
  1. YERVOY [Suspect]
     Active Substance: IPILIMUMAB
     Indication: METASTATIC MALIGNANT MELANOMA
     Dosage: 200 MG, UNK
     Route: 042
     Dates: start: 20141120

REACTIONS (10)
  - Gastrointestinal necrosis [Unknown]
  - Abdominal operation [Unknown]
  - Mesenteric artery embolism [Unknown]
  - Gastrointestinal ulcer [Unknown]
  - Endocrine disorder [Unknown]
  - Neuropathy peripheral [Unknown]
  - Postoperative wound infection [Unknown]
  - Gastrointestinal haemorrhage [Recovering/Resolving]
  - Enteritis [Unknown]
  - Pulmonary embolism [Unknown]

NARRATIVE: CASE EVENT DATE: 20150126
